FAERS Safety Report 5635762-9 (Version None)
Quarter: 2008Q1

REPORT INFORMATION
  Report Type: 
  Country: None (occurrence: None)
  Receive Date: 20080220
  Receipt Date: 20080129
  Transmission Date: 20080703
  Serious: Yes (Death)
  Sender: FDA-Public Use
  Company Number: 2008S1001659

PATIENT
  Age: 24 Year
  Sex: Male

DRUGS (1)
  1. TRAMADOL HCL [Suspect]
     Dosage: ORAL
     Route: 048

REACTIONS (2)
  - DRUG TOXICITY [None]
  - POISONING DELIBERATE [None]
